FAERS Safety Report 5328171-3 (Version None)
Quarter: 2007Q2

REPORT INFORMATION
  Report Type: 
  Country: None (occurrence: None)
  Receive Date: 20070517
  Receipt Date: 20070508
  Transmission Date: 20071010
  Serious: Yes (Life-Threatening, Hospitalization, Disabling, Other)
  Sender: FDA-Public Use
  Company Number: JP-ABBOTT-07P-087-0367516-00

PATIENT
  Sex: Male

DRUGS (16)
  1. AKINETON INJECTION [Suspect]
     Indication: EXTRAPYRAMIDAL DISORDER
     Dates: start: 20040522, end: 20040711
  2. AKINETON INJECTION [Suspect]
     Dates: start: 20040714, end: 20040714
  3. AKINETON INJECTION [Suspect]
     Dates: start: 20040714, end: 20040716
  4. AKINETON INJECTION [Suspect]
     Dates: start: 20040718
  5. HALOPERIDOL [Suspect]
     Indication: SCHIZOPHRENIA
     Dates: start: 20040714, end: 20040714
  6. HALOPERIDOL [Suspect]
     Route: 048
     Dates: start: 20040714, end: 20040714
  7. HALOPERIDOL [Suspect]
     Dates: start: 20040713, end: 20040713
  8. FLUPHENAZINE HCL [Suspect]
     Indication: SCHIZOPHRENIA
     Route: 030
     Dates: start: 20040713, end: 20040713
  9. OLANZAPINE [Concomitant]
     Indication: SCHIZOPHRENIA
     Route: 048
     Dates: start: 20040131, end: 20040711
  10. CLONAZEPAM [Concomitant]
     Indication: EXTRAPYRAMIDAL DISORDER
     Route: 048
     Dates: start: 20040131, end: 20040711
  11. CERCINE [Concomitant]
     Indication: SEDATIVE THERAPY
     Route: 030
     Dates: start: 20040713, end: 20040713
  12. FAMOTIDINE [Concomitant]
     Indication: PROPHYLAXIS AGAINST GASTROINTESTINAL ULCER
     Route: 048
     Dates: start: 20040714, end: 20040716
  13. FAMOTIDINE [Concomitant]
     Route: 048
     Dates: start: 20040723, end: 20040803
  14. EBASTINE [Concomitant]
     Indication: RASH
     Route: 048
     Dates: start: 20040716, end: 20040720
  15. UNSPECIFIED ANTIPSYCHOTICS [Concomitant]
     Indication: PSYCHOTIC DISORDER
  16. UNSPECIFIED INTRAVENOUS FLUID [Concomitant]
     Indication: DRUG USE FOR UNKNOWN INDICATION
     Dates: end: 20040716

REACTIONS (17)
  - ALTERED STATE OF CONSCIOUSNESS [None]
  - BLOOD CREATINE PHOSPHOKINASE INCREASED [None]
  - BLOOD PRESSURE DECREASED [None]
  - BRAIN HERNIATION [None]
  - BRAIN STEM INFARCTION [None]
  - CARDIAC ARREST [None]
  - CATATONIA [None]
  - CLONIC CONVULSION [None]
  - DYSPNOEA [None]
  - FOOD AVERSION [None]
  - HYPOXIA [None]
  - MUSCLE RIGIDITY [None]
  - NEUROLEPTIC MALIGNANT SYNDROME [None]
  - PSYCHOMOTOR HYPERACTIVITY [None]
  - PYREXIA [None]
  - REFUSAL OF TREATMENT BY PATIENT [None]
  - STUPOR [None]
